FAERS Safety Report 24957934 (Version 1)
Quarter: 2025Q1

REPORT INFORMATION
  Report Type: Spontaneous
  Country: CA (occurrence: CA)
  Receive Date: 20250212
  Receipt Date: 20250212
  Transmission Date: 20250409
  Serious: Yes (Death, Other)
  Sender: CSL BEHRING
  Company Number: CA-BEH-2025194916

PATIENT
  Age: 73 Year
  Sex: Male

DRUGS (1)
  1. HUMAN IMMUNOGLOBULIN G [Suspect]
     Active Substance: HUMAN IMMUNOGLOBULIN G
     Indication: Product used for unknown indication
     Dosage: 10 G, QW
     Route: 065

REACTIONS (1)
  - Death [Fatal]
